FAERS Safety Report 4427881-X (Version None)
Quarter: 2004Q3

REPORT INFORMATION
  Report Type: 
  Country: None (occurrence: None)
  Receive Date: 20040813
  Receipt Date: 20040727
  Transmission Date: 20050211
  Serious: Yes (Other)
  Sender: FDA-Public Use
  Company Number: B0341460A

PATIENT
  Age: 45 Year
  Sex: Female

DRUGS (2)
  1. ZANTAC 150 [Suspect]
     Dosage: ORAL
     Route: 048
  2. DICLOFENAC SODIUM [Suspect]
     Dosage: ORAL
     Route: 048

REACTIONS (3)
  - ANAPHYLACTIC REACTION [None]
  - SKIN TEST POSITIVE [None]
  - TYPE I HYPERSENSITIVITY [None]
